FAERS Safety Report 10179367 (Version 1)
Quarter: 2014Q2

REPORT INFORMATION
  Report Type: Spontaneous
  Country: US (occurrence: None)
  Receive Date: 20140416
  Receipt Date: 20140416
  Transmission Date: 20141212
  Serious: Yes (Other)
  Sender: FDA-Public Use
  Company Number: 163-POMAL-13102314

PATIENT
  Age: 72 Year
  Sex: Female
  Weight: 46.72 kg

DRUGS (14)
  1. POMALYST (POMALIDOMIDE) (4 MILLIGRAM, CAPSULES) [Suspect]
     Indication: PLASMA CELL MYELOMA
     Dosage: 21 IN 21 D
     Route: 048
     Dates: start: 20130524, end: 20131009
  2. CELEBREX [Concomitant]
  3. DEXAMETHASONE [Concomitant]
  4. CYCLOBENZAPRINE HCL (CYCLOBENZAPRINE HYDROCHLORIDE) [Concomitant]
  5. ESCITALOPRAM OXALATE [Concomitant]
  6. FLAXSEED OIL (LINSEED OIL) [Concomitant]
  7. HYDROCODONE /ACETAMINOPHEN (PROCET /USA/) [Concomitant]
  8. LORAZEPAM [Concomitant]
  9. LYRICA (PREGABALIN) [Concomitant]
  10. MEGACE (MEGESTROL ACETATE) [Concomitant]
  11. NEXIUM (ESOMEPRAZOLE) (ENTERIC-COATED TABLET) [Concomitant]
  12. PROBIOTIC/ ACIDOPHILUS (LACTOBACILLUS ACIDOPHILUS) [Concomitant]
  13. VALTREX (VALACICLOVIR HYDROCHLORIDE) [Concomitant]
  14. VITAMIN D3 (COLECALCIFEROL) [Concomitant]

REACTIONS (4)
  - Weight decreased [None]
  - Dehydration [None]
  - Diarrhoea [None]
  - Decreased appetite [None]
